FAERS Safety Report 8499197-6 (Version None)
Quarter: 2012Q2

REPORT INFORMATION
  Report Type: 
  Country: None (occurrence: None)
  Receive Date: 20120405
  Receipt Date: 20100707
  Transmission Date: 20120825
  Serious: Yes (Other)
  Sender: FDA-Public Use
  Company Number: PHHY2010US42014

PATIENT
  Age: 86 Year
  Sex: Female
  Weight: 140 kg

DRUGS (10)
  1. RECLAST [Suspect]
     Indication: OSTEOPOROSIS
     Dosage: 5 MG/ PER YEAR, INTRAVENOUS
     Route: 042
     Dates: start: 20100126
  2. VITAMIN D [Concomitant]
  3. LIBRAX [Concomitant]
  4. PRILOSEC [Concomitant]
  5. BISMUTH SUBSALICYLATE [Concomitant]
  6. MAALOX (ALGELDRATE, MAGNESIUM HYDROXIDE) [Concomitant]
  7. ALKA-SELTZER (ACETYLSALICYLIC ACID, CITRIC ACID, SODIUM BICARBONATE) [Concomitant]
  8. ATIVAN [Concomitant]
  9. IMODIUM [Concomitant]
  10. CALCIUM CARBONATE [Concomitant]

REACTIONS (7)
  - NAUSEA [None]
  - DRUG HYPERSENSITIVITY [None]
  - DYSPEPSIA [None]
  - FATIGUE [None]
  - INFLUENZA LIKE ILLNESS [None]
  - PAIN [None]
  - ABDOMINAL PAIN UPPER [None]
